FAERS Safety Report 17986002 (Version 2)
Quarter: 2020Q3

REPORT INFORMATION
  Report Type: Spontaneous
  Country: AT (occurrence: AT)
  Receive Date: 20200706
  Receipt Date: 20200728
  Transmission Date: 20201103
  Serious: Yes (Other)
  Sender: FDA-Public Use
  Company Number: AT-MYLANLABS-2020M1059884

PATIENT
  Sex: Male
  Weight: 1.3 kg

DRUGS (5)
  1. VALGANCICLOVIR. [Suspect]
     Active Substance: VALGANCICLOVIR
     Indication: CYTOMEGALOVIRUS INFECTION
     Dosage: PROLONGED TO A TOTAL OF TWO MONTHS
     Route: 064
  2. VALGANCICLOVIR. [Suspect]
     Active Substance: VALGANCICLOVIR
     Dosage: DUE TO NEUTROPENIA THE DOSE WAS HALVED, AND THE DURATION OF THERAPY
     Route: 064
  3. GANCICLOVIR. [Concomitant]
     Active Substance: GANCICLOVIR
     Indication: CYTOMEGALOVIRUS INFECTION
     Dosage: 12 MG/KG DAILY; FOR A TOTAL OF TWO WEEKS
     Route: 051
  4. VALACICLOVIR [Suspect]
     Active Substance: VALACYCLOVIR HYDROCHLORIDE
     Indication: CYTOMEGALOVIRUS INFECTION
     Dosage: 8 GRAM DAILY
     Route: 064
  5. VALGANCICLOVIR. [Suspect]
     Active Substance: VALGANCICLOVIR
     Dosage: FOR SIX WEEKS
     Route: 064

REACTIONS (4)
  - Neutropenia [Unknown]
  - Intentional product use issue [Unknown]
  - Foetal exposure during pregnancy [Recovered/Resolved]
  - Off label use [Unknown]
